FAERS Safety Report 4762586-7 (Version None)
Quarter: 2005Q3

REPORT INFORMATION
  Report Type: 
  Country: None (occurrence: None)
  Receive Date: 20050907
  Receipt Date: 20050707
  Transmission Date: 20060218
  Serious: Yes (Death)
  Sender: FDA-Public Use
  Company Number: JPKYO-S-20050014

PATIENT
  Age: 60 Year
  Sex: Male

DRUGS (2)
  1. NAVELBINE [Suspect]
     Indication: NON-SMALL CELL LUNG CANCER
     Dosage: 25MGM2 PER DAY
     Route: 042
     Dates: start: 20050610, end: 20050610
  2. GEMZAR [Suspect]
     Indication: NON-SMALL CELL LUNG CANCER
     Dosage: 1000MGM2 PER DAY
     Route: 042
     Dates: start: 20050610, end: 20050610

REACTIONS (3)
  - ASTHMA [None]
  - DEATH [None]
  - PNEUMONIA [None]
